FAERS Safety Report 4683554-X (Version None)
Quarter: 2005Q2

REPORT INFORMATION
  Report Type: 
  Country: None (occurrence: None)
  Receive Date: 20050602
  Receipt Date: 20050202
  Transmission Date: 20051028
  Serious: Yes (Hospitalization)
  Sender: FDA-Public Use
  Company Number: USA050290389

PATIENT
  Age: 90 Year
  Sex: Female

DRUGS (7)
  1. CYMBALTA [Suspect]
     Dosage: 30 MG DAY
     Dates: start: 20050201, end: 20050203
  2. FUROSEMIDE [Concomitant]
  3. XANAX(ALPRAZOLAM DUM) [Concomitant]
  4. LIDODERM(LIDOCAINE JELLY) [Concomitant]
  5. ENAPRIL ^EXCELL^(ENALAPRIL) [Concomitant]
  6. ENDOCET [Concomitant]
  7. DURAGESIC-100 [Concomitant]

REACTIONS (4)
  - ASTHENIA [None]
  - DEHYDRATION [None]
  - DIARRHOEA [None]
  - TREMOR [None]
